FAERS Safety Report 25462765 (Version 1)
Quarter: 2025Q2

REPORT INFORMATION
  Report Type: Spontaneous
  Country: US (occurrence: US)
  Receive Date: 20250620
  Receipt Date: 20250620
  Transmission Date: 20250716
  Serious: No
  Sender: MYLAN
  Company Number: US-MYLANLABS-2025M1050497

PATIENT
  Age: 77 Year
  Sex: Female

DRUGS (4)
  1. BREYNA [Suspect]
     Active Substance: BUDESONIDE\FORMOTEROL FUMARATE
     Indication: Asthma
     Dosage: 320 PER 9 MICROGRAM, BID (TWO PUFFS IN THE MORNING AND TWO PUFFS AT NIGHT BEFORE BED)
  2. BREYNA [Suspect]
     Active Substance: BUDESONIDE\FORMOTEROL FUMARATE
     Dosage: 320 PER 9 MICROGRAM, BID (TWO PUFFS IN THE MORNING AND TWO PUFFS AT NIGHT BEFORE BED)
     Route: 055
  3. BREYNA [Suspect]
     Active Substance: BUDESONIDE\FORMOTEROL FUMARATE
     Dosage: 320 PER 9 MICROGRAM, BID (TWO PUFFS IN THE MORNING AND TWO PUFFS AT NIGHT BEFORE BED)
     Route: 055
  4. BREYNA [Suspect]
     Active Substance: BUDESONIDE\FORMOTEROL FUMARATE
     Dosage: 320 PER 9 MICROGRAM, BID (TWO PUFFS IN THE MORNING AND TWO PUFFS AT NIGHT BEFORE BED)

REACTIONS (4)
  - Wrong technique in product usage process [Unknown]
  - Device difficult to use [Unknown]
  - Device issue [Unknown]
  - Device malfunction [Unknown]

NARRATIVE: CASE EVENT DATE: 20250608
